FAERS Safety Report 22345097 (Version 1)
Quarter: 2023Q2

REPORT INFORMATION
  Report Type: Report from Study
  Country: US (occurrence: US)
  Receive Date: 20230519
  Receipt Date: 20230519
  Transmission Date: 20230721
  Serious: Yes (Other)
  Sender: FDA-Public Use
  Company Number: US-MYLANLABS-2023M1051738

PATIENT
  Age: 63 Year
  Sex: Female

DRUGS (8)
  1. ERYTHROMYCIN [Suspect]
     Active Substance: ERYTHROMYCIN
     Indication: Sjogren^s syndrome
     Dosage: UNK
     Route: 065
  2. DOXYCYCLINE [Suspect]
     Active Substance: DOXYCYCLINE
     Indication: Sjogren^s syndrome
     Dosage: UNK
     Route: 048
  3. CYCLOSPORINE [Suspect]
     Active Substance: CYCLOSPORINE
     Indication: Sjogren^s syndrome
     Dosage: UNK
     Route: 065
  4. REFRESH P.M. [Suspect]
     Active Substance: MINERAL OIL\PETROLATUM
     Indication: Sjogren^s syndrome
     Dosage: UNK
     Route: 065
  5. LOTEPREDNOL [Suspect]
     Active Substance: LOTEPREDNOL
     Indication: Sjogren^s syndrome
     Dosage: UNK
     Route: 065
  6. BACITRACIN [Suspect]
     Active Substance: BACITRACIN
     Indication: Sjogren^s syndrome
     Dosage: UNK
     Route: 065
  7. POLYMYXIN [Suspect]
     Active Substance: POLYMYXIN
     Indication: Sjogren^s syndrome
     Dosage: UNK
     Route: 065
  8. VITAMIN A [Suspect]
     Active Substance: VITAMIN A
     Indication: Sjogren^s syndrome
     Dosage: UNK
     Route: 065

REACTIONS (2)
  - Drug ineffective for unapproved indication [Unknown]
  - Off label use [Unknown]
